FAERS Safety Report 7443299-X (Version None)
Quarter: 2011Q2

REPORT INFORMATION
  Report Type: 
  Country: None (occurrence: None)
  Receive Date: 20110428
  Receipt Date: 20110418
  Transmission Date: 20111010
  Serious: Yes (Hospitalization)
  Sender: FDA-Public Use
  Company Number: US-ACTELION-A-NJ2010-40138

PATIENT

DRUGS (15)
  1. COREG [Concomitant]
  2. REVATIO [Concomitant]
  3. FOLIC ACID [Concomitant]
  4. AMIODARONE [Concomitant]
  5. PRILOSEC [Concomitant]
  6. TRACLEER [Suspect]
     Indication: PULMONARY ARTERIAL HYPERTENSION
     Dosage: UNK MG, BID
     Route: 048
     Dates: start: 20020510
  7. SYNTHROID [Concomitant]
  8. COUMADIN [Concomitant]
  9. REMODULIN [Concomitant]
  10. ALDACTONE [Concomitant]
  11. LASIX [Concomitant]
  12. CELEXA [Concomitant]
  13. DIGOXIN [Concomitant]
  14. ENALAPRIL [Concomitant]
  15. AMBIEN [Concomitant]

REACTIONS (3)
  - DIARRHOEA [None]
  - NASAL CONGESTION [None]
  - DYSPNOEA [None]
